FAERS Safety Report 4378128-4 (Version None)
Quarter: 2004Q2

REPORT INFORMATION
  Report Type: 
  Country: None (occurrence: None)
  Receive Date: 20040609
  Receipt Date: 20040604
  Transmission Date: 20050107
  Serious: Yes (Other)
  Sender: FDA-Public Use
  Company Number: 200410309BYL

PATIENT

DRUGS (1)
  1. CIPROFLOXACIN [Suspect]

REACTIONS (1)
  - INTERSTITIAL LUNG DISEASE [None]
